FAERS Safety Report 9145364 (Version 1)
Quarter: 2013Q1

REPORT INFORMATION
  Report Type: Spontaneous
  Country: US (occurrence: None)
  Receive Date: 20130226
  Receipt Date: 20130226
  Transmission Date: 20140127
  Serious: No
  Sender: FDA-Public Use
  Company Number: None

PATIENT
  Age: 19 Year
  Sex: Female
  Weight: 56.7 kg

DRUGS (1)
  1. ENCARE VAGINAL CONTRACEPTIVE 100MG BLAIREX LABORATORIES INC. [Suspect]
     Dosage: 100MG 10MIN PRIOR TO INT VAG
     Route: 067

REACTIONS (1)
  - Dysuria [None]
